FAERS Safety Report 4844195-4 (Version None)
Quarter: 2005Q4

REPORT INFORMATION
  Report Type: 
  Country: None (occurrence: None)
  Receive Date: 20051202
  Receipt Date: 20051122
  Transmission Date: 20060501
  Serious: Yes (Other)
  Sender: FDA-Public Use
  Company Number: DE-ABBOTT-05P-062-0317922-00

PATIENT
  Age: 61 Year
  Sex: Male

DRUGS (1)
  1. ERGENYL CHRONO TABLETS [Suspect]
     Indication: BIPOLAR DISORDER
     Route: 048
     Dates: start: 19990101

REACTIONS (1)
  - INTESTINAL OBSTRUCTION [None]
